FAERS Safety Report 23092872 (Version 6)
Quarter: 2024Q2

REPORT INFORMATION
  Report Type: Spontaneous
  Country: JP (occurrence: JP)
  Receive Date: 20231021
  Receipt Date: 20240619
  Transmission Date: 20240716
  Serious: Yes (Hospitalization, Other)
  Sender: FDA-Public Use
  Company Number: JP-AMGEN-JPNSP2023184783

PATIENT
  Age: 85 Year
  Sex: Female

DRUGS (13)
  1. EVENITY [Suspect]
     Active Substance: ROMOSOZUMAB-AQQG
     Indication: Osteoporosis
     Dosage: 210 MILLIGRAM
     Route: 058
     Dates: start: 20230126, end: 20230802
  2. WARFARIN [Concomitant]
     Active Substance: WARFARIN
     Dosage: 3.75 MILLIGRAM, QD
     Dates: start: 20150919
  3. VALSARTAN [Concomitant]
     Active Substance: VALSARTAN
     Dosage: 40 MILLIGRAM, QD
  4. HERBESSER [Concomitant]
     Active Substance: DILTIAZEM HYDROCHLORIDE
     Dosage: 100 MILLIGRAM, QD
  5. FUROSEMIDE [Concomitant]
     Active Substance: FUROSEMIDE
     Dosage: 20 MILLIGRAM, QD
  6. TRIMEBUTINE MALEATE [Concomitant]
     Active Substance: TRIMEBUTINE MALEATE
     Dosage: 100 MILLIGRAM, TID
  7. GRIMAC [Concomitant]
     Dosage: 0.5 GRAM, TID
  8. POTASSIUM GLUCONATE [Concomitant]
     Active Substance: POTASSIUM GLUCONATE
     Dosage: 2.0 GRAM, QD (THREE DIVIDED DOSES)
  9. MAGNESIUM OXIDE [Concomitant]
     Active Substance: MAGNESIUM OXIDE
     Dosage: 0.5 GRAM, TID
  10. Alosenn [Concomitant]
     Dosage: 1.0 GRAM, QD
  11. SENNOSIDES [Concomitant]
     Active Substance: SENNOSIDES
     Dosage: 24 MILLIGRAM, QD
  12. ELDECALCITOL [Concomitant]
     Active Substance: ELDECALCITOL
     Dosage: 0.5 MICROGRAM, QD
  13. NITRODERM [Concomitant]
     Active Substance: NITROGLYCERIN
     Dosage: 25 MILLIGRAM, QD

REACTIONS (2)
  - Fall [Recovered/Resolved]
  - Femoral neck fracture [Recovered/Resolved]

NARRATIVE: CASE EVENT DATE: 20231001
